FAERS Safety Report 23052237 (Version 4)
Quarter: 2024Q1

REPORT INFORMATION
  Report Type: Report from Study
  Country: US (occurrence: US)
  Receive Date: 20231010
  Receipt Date: 20240321
  Transmission Date: 20240410
  Serious: No
  Sender: FDA-Public Use
  Company Number: US-SANDOZ-SDZ2023US040106

PATIENT
  Sex: Female

DRUGS (2)
  1. OMNITROPE [Suspect]
     Active Substance: SOMATROPIN
     Indication: Product used for unknown indication
     Dosage: 1.2 MG N/A DOSE EVERY N/A N/A DAILY X 6 DAYS A WEEK
     Route: 058
  2. OMNITROPE [Suspect]
     Active Substance: SOMATROPIN
     Indication: Product used for unknown indication
     Dosage: 1.2 MG N/A DOSE EVERY N/A N/A DAILY X 6 DAYS A WEEK
     Route: 058

REACTIONS (4)
  - Crying [Unknown]
  - Drug resistance [Unknown]
  - Product dose omission issue [Unknown]
  - Device issue [Unknown]
